FAERS Safety Report 7673861-0 (Version None)
Quarter: 2011Q3

REPORT INFORMATION
  Report Type: 
  Country: None (occurrence: None)
  Receive Date: 20110808
  Receipt Date: 20110722
  Transmission Date: 20111222
  Serious: Yes (Other)
  Sender: FDA-Public Use
  Company Number: AUR-APL-2011-04413

PATIENT
  Sex: Female

DRUGS (2)
  1. RIBAVIRIN [Suspect]
     Indication: PRODUCT USED FOR UNKNOWN INDICATION
  2. INTERFERON [Suspect]
     Indication: PRODUCT USED FOR UNKNOWN INDICATION

REACTIONS (3)
  - MATERNAL EXPOSURE DURING PREGNANCY [None]
  - DRUG DEPENDENCE [None]
  - PREGNANCY [None]
